FAERS Safety Report 4925913-3 (Version None)
Quarter: 2006Q1

REPORT INFORMATION
  Report Type: 
  Country: None (occurrence: None)
  Receive Date: 20060228
  Receipt Date: 20050414
  Transmission Date: 20060701
  Serious: Yes (Life-Threatening, Other)
  Sender: FDA-Public Use
  Company Number: US-GLAXOSMITHKLINE-A0554204A

PATIENT
  Age: 17 Year
  Sex: Female

DRUGS (4)
  1. LAMICTAL [Suspect]
     Indication: ATTENTION DEFICIT/HYPERACTIVITY DISORDER
     Route: 048
     Dates: start: 20050301, end: 20050401
  2. ADDERALL 10 [Concomitant]
  3. ZOLOFT [Concomitant]
  4. KLONOPIN [Concomitant]

REACTIONS (4)
  - MOUTH ULCERATION [None]
  - RASH [None]
  - SCAB [None]
  - STEVENS-JOHNSON SYNDROME [None]
